FAERS Safety Report 25548799 (Version 1)
Quarter: 2025Q3

REPORT INFORMATION
  Report Type: Spontaneous
  Country: EU (occurrence: EU)
  Receive Date: 20250714
  Receipt Date: 20250714
  Transmission Date: 20251020
  Serious: Yes (Other)
  Sender: SANOFI AVENTIS
  Company Number: None

PATIENT
  Age: 35 Year
  Sex: Male

DRUGS (8)
  1. ZOLPIDEM TARTRATE [Suspect]
     Active Substance: ZOLPIDEM TARTRATE
  2. OXAZEPAM [Suspect]
     Active Substance: OXAZEPAM
  3. CLONAZEPAM [Suspect]
     Active Substance: CLONAZEPAM
  4. PREGABALIN [Suspect]
     Active Substance: PREGABALIN
  5. MIDOMAFETAMINE [Suspect]
     Active Substance: MIDOMAFETAMINE
  6. AMPHETAMINE [Suspect]
     Active Substance: AMPHETAMINE
  7. CANNABIS SATIVA SUBSP. INDICA TOP [Suspect]
     Active Substance: CANNABIS SATIVA SUBSP. INDICA TOP
  8. COCAINE [Suspect]
     Active Substance: COCAINE

REACTIONS (5)
  - Substance use disorder [Unknown]
  - Drug use disorder [Unknown]
  - Altered state of consciousness [Recovered/Resolved]
  - Hypercapnia [Recovered/Resolved]
  - Hyperhidrosis [Recovered/Resolved]
